FAERS Safety Report 7942120-0 (Version None)
Quarter: 2011Q4

REPORT INFORMATION
  Report Type: 
  Country: None (occurrence: None)
  Receive Date: 20111122
  Receipt Date: 20111117
  Transmission Date: 20120403
  Serious: Yes (Hospitalization)
  Sender: FDA-Public Use
  Company Number: AUR-APL-2011-05861

PATIENT
  Sex: Male

DRUGS (1)
  1. LEVETIRACETAM [Suspect]
     Indication: CONVULSION
     Dosage: (250 MG) , ORAL
     Route: 048
     Dates: start: 20111103, end: 20111110

REACTIONS (2)
  - IDIOSYNCRATIC DRUG REACTION [None]
  - RASH [None]
